FAERS Safety Report 6221331-9 (Version None)
Quarter: 2009Q2

REPORT INFORMATION
  Report Type: 
  Country: None (occurrence: None)
  Receive Date: 20090610
  Receipt Date: 20090513
  Transmission Date: 20091009
  Serious: No
  Sender: FDA-Public Use
  Company Number: US-BAYER-200911510BCC

PATIENT
  Age: 72 Year
  Sex: Female
  Weight: 91 kg

DRUGS (2)
  1. ALEVE [Suspect]
     Indication: BACK PAIN
     Dosage: TOOK TWO ALEVE ( UNKNOWN FORM)
     Route: 048
     Dates: start: 20090403
  2. EXCEDRIN [Concomitant]
     Indication: BACK PAIN
     Route: 048

REACTIONS (1)
  - BACK PAIN [None]
